FAERS Safety Report 13390063 (Version 1)
Quarter: 2017Q1

REPORT INFORMATION
  Report Type: Spontaneous
  Country: US (occurrence: US)
  Receive Date: 20170330
  Receipt Date: 20170330
  Transmission Date: 20170429
  Serious: Yes (Hospitalization, Disabling)
  Sender: FDA-Public Use
  Company Number: None

PATIENT
  Age: 79 Year
  Sex: Male
  Weight: 81 kg

DRUGS (2)
  1. YERVOY [Suspect]
     Active Substance: IPILIMUMAB
     Indication: MALIGNANT MELANOMA
     Dates: start: 20170215, end: 20170315
  2. BLOOD PRESSURE [Concomitant]

REACTIONS (7)
  - Fatigue [None]
  - Nerve injury [None]
  - Vision blurred [None]
  - Decreased appetite [None]
  - Back pain [None]
  - Diarrhoea [None]
  - Neck pain [None]

NARRATIVE: CASE EVENT DATE: 20170322
